FAERS Safety Report 7097754-5 (Version None)
Quarter: 2010Q4

REPORT INFORMATION
  Report Type: 
  Country: None (occurrence: None)
  Receive Date: 20101103
  Receipt Date: 20101020
  Transmission Date: 20110411
  Serious: Yes (Other)
  Sender: FDA-Public Use
  Company Number: ACO_02885_2010

PATIENT
  Sex: Female

DRUGS (2)
  1. AMPYRA [Suspect]
     Indication: GAIT DISTURBANCE
     Dosage: DF
     Dates: start: 20101009
  2. AVONEX [Concomitant]

REACTIONS (6)
  - ABNORMAL DREAMS [None]
  - CRYING [None]
  - DEPRESSION [None]
  - INFLUENZA LIKE ILLNESS [None]
  - MENOPAUSE [None]
  - TREMOR [None]
